FAERS Safety Report 21926289 (Version 1)
Quarter: 2023Q1

REPORT INFORMATION
  Report Type: Spontaneous
  Country: IE (occurrence: IE)
  Receive Date: 20230130
  Receipt Date: 20230130
  Transmission Date: 20230418
  Serious: Yes (Other)
  Sender: FDA-Public Use
  Company Number: IE-BAYER-2023A010951

PATIENT
  Sex: Female

DRUGS (1)
  1. VITRAKVI [Suspect]
     Active Substance: LAROTRECTINIB
     Indication: Salivary gland neoplasm
     Dosage: 100 MG, QD
     Dates: end: 20221222

REACTIONS (2)
  - Salivary gland neoplasm [None]
  - Off label use [None]
